FAERS Safety Report 7222359-2 (Version None)
Quarter: 2011Q1

REPORT INFORMATION
  Report Type: 
  Country: None (occurrence: None)
  Receive Date: 20110112
  Receipt Date: 20110109
  Transmission Date: 20110831
  Serious: Yes (Hospitalization)
  Sender: FDA-Public Use
  Company Number: US-ABBOTT-11P-163-0696422-00

PATIENT
  Sex: Female
  Weight: 64.468 kg

DRUGS (1)
  1. HUMIRA [Suspect]
     Indication: CROHN'S DISEASE
     Route: 058
     Dates: start: 20101101

REACTIONS (4)
  - ABDOMINAL PAIN [None]
  - NAUSEA [None]
  - INTESTINAL OBSTRUCTION [None]
  - CROHN'S DISEASE [None]
